FAERS Safety Report 7801367-4 (Version None)
Quarter: 2011Q4

REPORT INFORMATION
  Report Type: 
  Country: None (occurrence: None)
  Receive Date: 20111007
  Receipt Date: 20111004
  Transmission Date: 20120403
  Serious: Yes (Other)
  Sender: FDA-Public Use
  Company Number: US-PFIZER INC-2011226678

PATIENT
  Sex: Male
  Weight: 61.224 kg

DRUGS (1)
  1. CHANTIX [Suspect]
     Indication: SMOKING CESSATION THERAPY
     Dosage: 0.5 MG, 1X/DAY
     Route: 048
     Dates: start: 20110920, end: 20110922

REACTIONS (3)
  - ABNORMAL BEHAVIOUR [None]
  - ABNORMAL DREAMS [None]
  - SUICIDAL IDEATION [None]
